FAERS Safety Report 5374917-8 (Version None)
Quarter: 2007Q2

REPORT INFORMATION
  Report Type: 
  Country: None (occurrence: None)
  Receive Date: 20070629
  Receipt Date: 20070618
  Transmission Date: 20071010
  Serious: Yes (Other)
  Sender: FDA-Public Use
  Company Number: FR-ELI_LILLY_AND_COMPANY-FR200601000562

PATIENT
  Age: 63 Year
  Sex: Female
  Weight: 53 kg

DRUGS (11)
  1. FORTEO [Suspect]
     Indication: OSTEOPOROSIS
     Dosage: 20 UG/DAY, UNK
     Route: 058
     Dates: start: 20050915
  2. AVLOCARDYL [Concomitant]
     Dosage: 2.5 D/F, DAILY (1/D)
     Route: 048
  3. DILTIAZEM [Concomitant]
     Dosage: 1 D/F, DAILY (1/D)
     Route: 048
  4. PLAVIX [Concomitant]
     Dosage: 1 D/F, DAILY (1/D)
     Route: 048
  5. SKENAN [Concomitant]
     Dosage: 2 D/F, DAILY (1/D)
     Route: 048
  6. RIVOTRIL [Concomitant]
     Dosage: 21 GTT, DAILY (1/D)
     Route: 048
  7. OGAST [Concomitant]
     Dosage: 1 D/F, DAILY (1/D)
     Route: 048
  8. LEVOTHYROXINE SODIUM [Concomitant]
     Dosage: 50 UG, DAILY (1/D)
     Route: 048
  9. EFFEXOR [Concomitant]
     Dosage: 37.5 MG, DAILY (1/D)
     Route: 048
  10. ACTISKENAN [Concomitant]
     Route: 048
  11. AMYCOR [Concomitant]

REACTIONS (1)
  - WEIGHT DECREASED [None]
